FAERS Safety Report 5934855-6 (Version None)
Quarter: 2008Q4

REPORT INFORMATION
  Report Type: 
  Country: None (occurrence: None)
  Receive Date: 20081029
  Receipt Date: 20081022
  Transmission Date: 20090506
  Serious: Yes (Hospitalization)
  Sender: FDA-Public Use
  Company Number: SG-GENENTECH-268512

PATIENT
  Weight: 60.9 kg

DRUGS (11)
  1. FLUOROURACIL [Suspect]
     Indication: BREAST CANCER
     Dosage: 975 MG, Q3W
     Route: 042
     Dates: start: 20061011
  2. BLINDED BEVACIZUMAB [Suspect]
     Indication: BREAST CANCER
     Dosage: 975 MG, Q3W
     Route: 042
     Dates: start: 20061011
  3. BLINDED CAPECITABINE [Suspect]
     Indication: BREAST CANCER
     Dosage: 975 MG, Q3W
     Route: 042
     Dates: start: 20061011
  4. CYCLOPHOSPHAMIDE [Suspect]
     Indication: BREAST CANCER
     Dosage: 975 MG, Q3W
     Route: 042
     Dates: start: 20061011
  5. DOCETAXEL [Suspect]
     Indication: BREAST CANCER
     Dosage: 975 MG, Q3W
     Route: 042
     Dates: start: 20061011
  6. DOXORUBICIN HCL [Suspect]
     Indication: BREAST CANCER
     Dosage: 975 MG, Q3W
     Route: 042
     Dates: start: 20061011
  7. EPIRUBICIN [Suspect]
     Indication: BREAST CANCER
     Dosage: 975 MG, Q3W
     Route: 042
     Dates: start: 20061011
  8. PACLITAXEL [Suspect]
     Indication: BREAST CANCER
     Dosage: 975 MG, Q3W
     Route: 042
     Dates: start: 20061011
  9. BLINDED PLACEBO [Suspect]
     Indication: BREAST CANCER
     Dosage: 975 MG, Q3W
     Route: 042
     Dates: start: 20061011
  10. DOXORUBICIN HCL [Suspect]
     Indication: BREAST CANCER
     Dosage: 50 MG/M2, UNK
     Route: 042
     Dates: start: 20061011, end: 20070301
  11. CYCLOPHOSPHAMIDE [Suspect]
     Indication: BREAST CANCER
     Dosage: 500 MG/M2, UNK
     Dates: start: 20061011, end: 20070301

REACTIONS (1)
  - PYREXIA [None]
